FAERS Safety Report 19332616 (Version 1)
Quarter: 2021Q2

REPORT INFORMATION
  Report Type: Spontaneous
  Country: US (occurrence: US)
  Receive Date: 20210529
  Receipt Date: 20210529
  Transmission Date: 20210717
  Serious: Yes (Other)
  Sender: FDA-Public Use
  Company Number: US-DRREDDYS-USA/USA/21/0136006

PATIENT
  Age: 15 Year
  Sex: Female
  Weight: 68.3 kg

DRUGS (2)
  1. IBUPROFEN. [Suspect]
     Active Substance: IBUPROFEN
     Indication: DYSMENORRHOEA
     Dosage: HIGH DOSES (1,600?2,400 MG/DAY) INTERMITTENTLY FOR THE PAST 6 MONTHS
  2. IBUPROFEN. [Suspect]
     Active Substance: IBUPROFEN
     Indication: ABDOMINAL PAIN LOWER
     Dosage: HIGH DOSES (1,600?2,400 MG/DAY) INTERMITTENTLY FOR THE PAST 6 MONTHS

REACTIONS (3)
  - Nephropathy toxic [Recovered/Resolved]
  - Nephrotic syndrome [Recovered/Resolved]
  - Glomerulonephritis membranous [Recovered/Resolved]
